FAERS Safety Report 5849714-7 (Version None)
Quarter: 2008Q3

REPORT INFORMATION
  Report Type: 
  Country: None (occurrence: None)
  Receive Date: 20080818
  Receipt Date: 20080818
  Transmission Date: 20090109
  Serious: Yes (Hospitalization)
  Sender: FDA-Public Use
  Company Number: None

PATIENT
  Age: 35 Year
  Sex: Male
  Weight: 2 kg

DRUGS (6)
  1. GLEEVEC [Suspect]
     Indication: GLIOBLASTOMA
     Dosage: 500 MG BID PO
     Route: 048
     Dates: start: 20080626, end: 20080723
  2. HYDROXYUREA [Suspect]
     Indication: GLIOBLASTOMA
     Dosage: 500 MG, BID PO
     Route: 048
     Dates: start: 20080626, end: 20080723
  3. RAD001 [Suspect]
     Indication: GLIOBLASTOMA
     Dosage: 2.5MG QOD PO
     Route: 048
     Dates: start: 20080626, end: 20080723
  4. CELEXA [Concomitant]
  5. TEGRETOL [Concomitant]
  6. DEXAMETHASONE TAB [Concomitant]

REACTIONS (3)
  - CONVULSION [None]
  - NEOPLASM PROGRESSION [None]
  - PLATELET COUNT DECREASED [None]
